FAERS Safety Report 16633421 (Version 1)
Quarter: 2019Q3

REPORT INFORMATION
  Report Type: Spontaneous
  Country: US (occurrence: US)
  Receive Date: 20190725
  Receipt Date: 20190725
  Transmission Date: 20191004
  Serious: No
  Sender: FDA-Public Use
  Company Number: None

PATIENT
  Age: 21 Year
  Sex: Female
  Weight: 58.5 kg

DRUGS (6)
  1. FLUOXETINE (PROZAC) 20MG [Concomitant]
  2. IBUPROFEN. [Concomitant]
     Active Substance: IBUPROFEN
  3. LEVOFLOXACIN 500MG [Concomitant]
     Active Substance: LEVOFLOXACIN
  4. TRAZODONE [Concomitant]
     Active Substance: TRAZODONE HYDROCHLORIDE
  5. NUVARING [Suspect]
     Active Substance: ETHINYL ESTRADIOL\ETONOGESTREL
     Indication: CONTRACEPTION
     Dosage: ?          QUANTITY:1 RING;OTHER FREQUENCY:MONTHLY;?
     Route: 067
     Dates: start: 20190719, end: 20190725
  6. DIMENHYDRINATE (MOTION SICKNESS RELIEF) [Concomitant]

REACTIONS (9)
  - Vulvovaginal swelling [None]
  - Vulvovaginal discomfort [None]
  - Device allergy [None]
  - Dyspareunia [None]
  - Malaise [None]
  - Chest discomfort [None]
  - Adnexa uteri pain [None]
  - Vaginal discharge [None]
  - Dysgeusia [None]

NARRATIVE: CASE EVENT DATE: 20190725
